FAERS Safety Report 19475864 (Version 1)
Quarter: 2021Q2

REPORT INFORMATION
  Report Type: Spontaneous
  Country: US (occurrence: US)
  Receive Date: 20210630
  Receipt Date: 20210630
  Transmission Date: 20210717
  Serious: No
  Sender: FDA-Public Use
  Company Number: US-TEVA-2021-US-1927747

PATIENT
  Age: 35 Year
  Sex: Female

DRUGS (2)
  1. MICROGESTIN FE 1/20 [Suspect]
     Active Substance: ETHINYL ESTRADIOL\NORETHINDRONE ACETATE
     Route: 065
  2. MICROGESTIN FE 1/20 [Suspect]
     Active Substance: ETHINYL ESTRADIOL\NORETHINDRONE ACETATE
     Route: 065
     Dates: start: 2011, end: 2017

REACTIONS (1)
  - Acne [Unknown]

NARRATIVE: CASE EVENT DATE: 202105
